FAERS Safety Report 5127526-X (Version None)
Quarter: 2006Q4

REPORT INFORMATION
  Report Type: 
  Country: None (occurrence: None)
  Receive Date: 20061011
  Receipt Date: 20061002
  Transmission Date: 20070319
  Serious: Yes (Hospitalization)
  Sender: FDA-Public Use
  Company Number: MEDI-0004890

PATIENT
  Age: 15 Month
  Sex: Female

DRUGS (5)
  1. SYNAGIS [Suspect]
     Indication: ANTIVIRAL PROPHYLAXIS
     Dosage: INTRAMUSCULAR, (SEE IMAGE)
     Route: 030
     Dates: start: 20051015, end: 20060214
  2. SYNAGIS [Suspect]
     Indication: ANTIVIRAL PROPHYLAXIS
     Dosage: INTRAMUSCULAR, (SEE IMAGE)
     Route: 030
     Dates: start: 20051015
  3. SYNAGIS [Suspect]
     Indication: ANTIVIRAL PROPHYLAXIS
     Dosage: INTRAMUSCULAR, (SEE IMAGE)
     Route: 030
     Dates: start: 20051113
  4. SYNAGIS [Suspect]
     Indication: ANTIVIRAL PROPHYLAXIS
     Dosage: INTRAMUSCULAR, (SEE IMAGE)
     Route: 030
     Dates: start: 20051210
  5. SYNAGIS [Suspect]
     Indication: ANTIVIRAL PROPHYLAXIS
     Dosage: INTRAMUSCULAR, (SEE IMAGE)
     Route: 030
     Dates: start: 20060117

REACTIONS (3)
  - DEHYDRATION [None]
  - GASTROENTERITIS [None]
  - HAEMANGIOMA [None]
